FAERS Safety Report 5485677-4 (Version None)
Quarter: 2007Q4

REPORT INFORMATION
  Report Type: 
  Country: None (occurrence: None)
  Receive Date: 20071015
  Receipt Date: 20071003
  Transmission Date: 20080405
  Serious: Yes (Disabling, Other)
  Sender: FDA-Public Use
  Company Number: NL-AMGEN-US246892

PATIENT
  Sex: Male
  Weight: 110 kg

DRUGS (1)
  1. ENBREL [Suspect]
     Indication: ANKYLOSING SPONDYLITIS
     Dates: start: 20070108, end: 20070815

REACTIONS (4)
  - DEMYELINATION [None]
  - HYPOAESTHESIA [None]
  - PAROSMIA [None]
  - VISUAL ACUITY REDUCED [None]
